FAERS Safety Report 6109043-3 (Version None)
Quarter: 2009Q1

REPORT INFORMATION
  Report Type: 
  Country: None (occurrence: None)
  Receive Date: 20090310
  Receipt Date: 20090303
  Transmission Date: 20090719
  Serious: Yes (Other)
  Sender: FDA-Public Use
  Company Number: US-BAYER-200814295BCC

PATIENT
  Age: 77 Year
  Sex: Female
  Weight: 59 kg

DRUGS (7)
  1. ALEVE (CAPLET) [Suspect]
     Indication: SCIATICA
     Dosage: TOTAL DAILY DOSE: 660 MG  UNIT DOSE: 220 MG
  2. ALEVE (CAPLET) [Suspect]
     Indication: SCIATICA
     Dosage: UNIT DOSE: 220 MG
     Route: 048
  3. TYLENOL (CAPLET) [Concomitant]
     Dosage: UNIT DOSE: 500 MG
  4. AVALIDE [Concomitant]
  5. TRAMADOL [Concomitant]
  6. ASPIRIN [Concomitant]
  7. TOMAZEPAN [Concomitant]

REACTIONS (3)
  - BREAST MASS [None]
  - BREAST SWELLING [None]
  - HAEMATOCHEZIA [None]
